FAERS Safety Report 18118990 (Version 1)
Quarter: 2020Q3

REPORT INFORMATION
  Report Type: Other
  Country: US (occurrence: US)
  Receive Date: 20200806
  Receipt Date: 20200806
  Transmission Date: 20201103
  Serious: Yes (Death)
  Sender: FDA-Public Use
  Company Number: US-ROCHE-2650551

PATIENT
  Sex: Female

DRUGS (2)
  1. RITUXAN [Suspect]
     Active Substance: RITUXIMAB
     Indication: MICROSCOPIC POLYANGIITIS
     Dosage: ONGOING : NO
     Route: 065
     Dates: end: 20200531
  2. PREDNISONE. [Concomitant]
     Active Substance: PREDNISONE

REACTIONS (1)
  - COVID-19 [Fatal]

NARRATIVE: CASE EVENT DATE: 2020
